FAERS Safety Report 13049176 (Version 1)
Quarter: 2016Q4

REPORT INFORMATION
  Report Type: Spontaneous
  Country: FR (occurrence: FR)
  Receive Date: 20161221
  Receipt Date: 20161221
  Transmission Date: 20170207
  Serious: Yes (Life-Threatening, Hospitalization, Other)
  Sender: FDA-Public Use
  Company Number: FR-PFIZER INC-2016587456

PATIENT
  Age: 82 Year
  Sex: Female

DRUGS (4)
  1. TRIATEC [Suspect]
     Active Substance: RAMIPRIL
     Indication: HYPERTENSION
     Dosage: 1 DF, DAILY
     Route: 048
  2. VELMETIA [Suspect]
     Active Substance: METFORMIN\SITAGLIPTIN
     Indication: DIABETES MELLITUS
     Dosage: UNK
     Route: 048
  3. LEVOTHYROX [Concomitant]
     Active Substance: LEVOTHYROXINE
     Dosage: UNK
  4. KARDEGIC [Concomitant]
     Active Substance: ASPIRIN LYSINE
     Dosage: UNK

REACTIONS (5)
  - Cardio-respiratory arrest [Recovered/Resolved]
  - Pulmonary embolism [Unknown]
  - Lung disorder [Recovered/Resolved]
  - Tongue oedema [Recovered/Resolved]
  - Pharyngeal oedema [Recovered/Resolved]

NARRATIVE: CASE EVENT DATE: 201608
